FAERS Safety Report 19120647 (Version 1)
Quarter: 2021Q2

REPORT INFORMATION
  Report Type: Spontaneous
  Country: FR (occurrence: FR)
  Receive Date: 20210412
  Receipt Date: 20210412
  Transmission Date: 20210717
  Serious: Yes (Other)
  Sender: FDA-Public Use
  Company Number: NVSC2021FR076877

PATIENT
  Age: 33 Year
  Sex: Female

DRUGS (4)
  1. OXYTOCINE [Suspect]
     Active Substance: OXYTOCIN
     Indication: DELIVERY
     Dosage: 5 IU, QD
     Route: 042
     Dates: start: 20210131, end: 20210131
  2. TRAMADOL. [Suspect]
     Active Substance: TRAMADOL
     Indication: PAIN
     Dosage: UNK
     Route: 065
     Dates: start: 20210131, end: 20210201
  3. AMOXICILLINE [Suspect]
     Active Substance: AMOXICILLIN
     Indication: INFECTION PROPHYLAXIS
     Dosage: 1 G, QD
     Route: 042
     Dates: start: 20210131, end: 20210131
  4. NEFOPAM [Suspect]
     Active Substance: NEFOPAM
     Indication: PAIN
     Dosage: UNK
     Route: 065
     Dates: start: 20210131, end: 20210201

REACTIONS (2)
  - Lip erosion [Recovered/Resolved]
  - Target skin lesion [Recovering/Resolving]

NARRATIVE: CASE EVENT DATE: 20210209
